FAERS Safety Report 22181274 (Version 2)
Quarter: 2024Q3

REPORT INFORMATION
  Report Type: Report from Study
  Country: US (occurrence: US)
  Receive Date: 20230406
  Receipt Date: 20240813
  Transmission Date: 20241017
  Serious: Yes (Hospitalization, Other)
  Sender: NOVARTIS
  Company Number: US-002147023-NVSC2023US053438

PATIENT
  Age: 33 Year
  Sex: Female
  Weight: 90.7 kg

DRUGS (55)
  1. PIQRAY [Suspect]
     Active Substance: ALPELISIB
     Indication: Breast cancer female
     Dosage: 250 MG, QD (FOR 21 DAYS CYCLE)
     Route: 048
     Dates: start: 20230130, end: 20230222
  2. PIQRAY [Suspect]
     Active Substance: ALPELISIB
     Dosage: 200 MG (TAKE ONE TABLET BY MOUTH DAILY FOR 21 DAYS, ADMINISTER WITH FOOD AT APPROXIMATELY THE SAME T
     Route: 048
  3. PIQRAY [Suspect]
     Active Substance: ALPELISIB
     Dosage: 50 MG (ONE TABLET BY MOUTH DAILY FOR 21 DAYS, ADMINISTER WITH FOOD AT APPROXIMATELY THE SAME TIME EA
     Route: 048
  4. PIQRAY [Suspect]
     Active Substance: ALPELISIB
     Dosage: 1 DOSAGE FORM
     Route: 048
     Dates: start: 20230217
  5. ZOFRAN [Suspect]
     Active Substance: ONDANSETRON HYDROCHLORIDE
     Indication: Nausea
     Dosage: 4 MG, PRN (EVERY 6 HRS)
     Route: 065
     Dates: start: 20230212
  6. SACITUZUMAB GOVITECAN [Suspect]
     Active Substance: SACITUZUMAB GOVITECAN
     Indication: Breast cancer
     Dosage: 10 MG, OTHER (ONCE ON DAYS 1 AND 8, EVERY 21 DAYS, C2D1 DUE ON 02/20)
     Route: 042
     Dates: start: 20230130, end: 20230222
  7. SACITUZUMAB GOVITECAN [Suspect]
     Active Substance: SACITUZUMAB GOVITECAN
     Dosage: UNK
     Route: 042
     Dates: start: 20230206
  8. POTASSIUM CHLORIDE [Concomitant]
     Active Substance: POTASSIUM CHLORIDE
     Indication: Product used for unknown indication
     Dosage: 20 MEQ (SR, K-DUR)
     Route: 065
     Dates: start: 20230206
  9. POTASSIUM CHLORIDE [Concomitant]
     Active Substance: POTASSIUM CHLORIDE
     Dosage: 10 MEQ, Q2H
     Route: 042
  10. GLUCOPHAGE [Concomitant]
     Active Substance: METFORMIN HYDROCHLORIDE
     Indication: Product used for unknown indication
     Dosage: 500 MG
     Route: 065
     Dates: start: 20230206
  11. NORCO [Concomitant]
     Active Substance: ACETAMINOPHEN\HYDROCODONE BITARTRATE
     Indication: Pain
     Dosage: UNK
     Route: 065
     Dates: start: 20230203
  12. NORCO [Concomitant]
     Active Substance: ACETAMINOPHEN\HYDROCODONE BITARTRATE
     Dosage: UNK, Q6H (PRN)
     Route: 065
  13. ALBUTEROL SULFATE [Concomitant]
     Active Substance: ALBUTEROL SULFATE
     Indication: Product used for unknown indication
     Dosage: UNK (90 MCG PER ACTUATION)
     Route: 065
     Dates: start: 20230202
  14. ALBUTEROL SULFATE [Concomitant]
     Active Substance: ALBUTEROL SULFATE
     Dosage: UNK, Q4H (PRN)
     Route: 055
  15. ALBUTEROL SULFATE [Concomitant]
     Active Substance: ALBUTEROL SULFATE
     Dosage: UNK, Q6H (AS NEEDED)
     Route: 065
  16. OMEPRAZOLE MAGNESIUM [Concomitant]
     Active Substance: OMEPRAZOLE MAGNESIUM
     Indication: Product used for unknown indication
     Dosage: 20 MG
     Route: 065
     Dates: start: 20221220
  17. COMPAZINE [Concomitant]
     Active Substance: PROCHLORPERAZINE MALEATE
     Indication: Product used for unknown indication
     Dosage: UNK UNK, PRN
     Route: 065
  18. OLANZAPINE [Concomitant]
     Active Substance: OLANZAPINE
     Indication: Product used for unknown indication
     Dosage: 5 MG, Q6H (PRN)
     Route: 065
  19. LOPERAMIDE [Concomitant]
     Active Substance: LOPERAMIDE
     Indication: Product used for unknown indication
     Dosage: 2 MG
     Route: 065
  20. MELATONIN [Concomitant]
     Active Substance: MELATONIN
     Indication: Product used for unknown indication
     Dosage: UNK, PRN
     Route: 065
  21. ONDANSETRON [Concomitant]
     Active Substance: ONDANSETRON
     Indication: Product used for unknown indication
     Dosage: UNK, Q6H (PRN)
     Route: 065
  22. POLYETHYLENE GLYCOL [Concomitant]
     Active Substance: POLYETHYLENE GLYCOL
     Indication: Product used for unknown indication
     Dosage: UNK, PRN
     Route: 065
  23. PROCHLORPERAZINE [Concomitant]
     Active Substance: PROCHLORPERAZINE
     Indication: Product used for unknown indication
     Dosage: UNK, Q6H (PRN)
     Route: 065
  24. OPIUM [Concomitant]
     Active Substance: MORPHINE\OPIUM
     Indication: Product used for unknown indication
     Dosage: UNK
     Route: 065
  25. OPIUM [Concomitant]
     Active Substance: MORPHINE\OPIUM
     Dosage: 0.6 ML, Q6H
     Route: 048
     Dates: start: 20230217
  26. CIPROFLOXACIN [Concomitant]
     Active Substance: CIPROFLOXACIN
     Indication: Product used for unknown indication
     Dosage: UNK
     Route: 065
  27. CIPROFLOXACIN [Concomitant]
     Active Substance: CIPROFLOXACIN
     Dosage: 500 MG, Q12H
     Route: 048
     Dates: start: 20230217, end: 20230302
  28. FLAGYL [Concomitant]
     Active Substance: METRONIDAZOLE\METRONIDAZOLE HYDROCHLORIDE
     Indication: Product used for unknown indication
     Dosage: UNK
     Route: 065
  29. FLAGYL [Concomitant]
     Active Substance: METRONIDAZOLE\METRONIDAZOLE HYDROCHLORIDE
     Dosage: 500 MG, BID
     Route: 048
     Dates: start: 20230217, end: 20230302
  30. METHYLPREDNISOLONE [Concomitant]
     Active Substance: METHYLPREDNISOLONE
     Indication: Product used for unknown indication
     Dosage: 90 MG
     Route: 042
     Dates: start: 20230215
  31. BACTRIM [Concomitant]
     Active Substance: SULFAMETHOXAZOLE\TRIMETHOPRIM
     Indication: Prophylaxis
     Dosage: UNK
     Route: 065
  32. BACTRIM [Concomitant]
     Active Substance: SULFAMETHOXAZOLE\TRIMETHOPRIM
     Dosage: 1 DOSAGE FORM, TID
     Route: 048
  33. DELTASONE [Concomitant]
     Active Substance: PREDNISONE
     Indication: Prophylaxis
     Dosage: 90 MG
     Route: 065
  34. DELTASONE [Concomitant]
     Active Substance: PREDNISONE
     Dosage: 5 MG, BID
     Route: 048
  35. DELTASONE [Concomitant]
     Active Substance: PREDNISONE
     Dosage: 20 MG, BID (TOTAL OF 45 MG)
     Route: 065
     Dates: start: 20230217
  36. DELTASONE [Concomitant]
     Active Substance: PREDNISONE
     Dosage: 40 MG, BID
     Route: 048
  37. PHYTONADIONE [Concomitant]
     Active Substance: PHYTONADIONE
     Indication: Product used for unknown indication
     Dosage: 5 MG, QD
     Route: 048
  38. CALCIUM CARBONATE [Concomitant]
     Active Substance: CALCIUM CARBONATE
     Indication: Product used for unknown indication
     Dosage: UNK UNK, Q4H (PRN)
     Route: 065
  39. CODEINE;GUAIFENESIN;PHENIRAMINE [Concomitant]
     Indication: Product used for unknown indication
     Dosage: UNK, QID (PRN)
     Route: 065
  40. DIPHENOXYLATE HYDROCHLORIDE AND ATROPINE SULFATE [Concomitant]
     Active Substance: ATROPINE SULFATE\DIPHENOXYLATE HYDROCHLORIDE
     Indication: Product used for unknown indication
     Dosage: UNK, QID (PRN)
     Route: 065
  41. PEPCID [Concomitant]
     Active Substance: FAMOTIDINE
     Indication: Product used for unknown indication
     Dosage: 20 MG, QD
     Route: 048
  42. FILGRASTIM [Concomitant]
     Active Substance: FILGRASTIM
     Indication: Product used for unknown indication
     Dosage: 480 MCG, 5 MCG/KG, Q24H
     Route: 058
  43. SODIUM CHLORIDE [Concomitant]
     Active Substance: SODIUM CHLORIDE
     Indication: Product used for unknown indication
     Dosage: UNK
     Route: 041
  44. SODIUM CHLORIDE [Concomitant]
     Active Substance: SODIUM CHLORIDE
     Dosage: 500 ML (SUBCLAVIAN, RIGHT) (IMPLANTABLE PORT-A-CATH SINGLE LUMEN0
     Route: 042
     Dates: start: 20220212
  45. PROTONIX [Concomitant]
     Active Substance: PANTOPRAZOLE SODIUM
     Indication: Product used for unknown indication
     Dosage: 40 MG, QD
     Route: 065
  46. ROCEPHIN [Concomitant]
     Active Substance: CEFTRIAXONE SODIUM
     Indication: Product used for unknown indication
     Dosage: 1 G (IVP) Q24H
     Route: 042
  47. SOLU-MEDROL [Concomitant]
     Active Substance: METHYLPREDNISOLONE SODIUM SUCCINATE
     Indication: Product used for unknown indication
     Dosage: 90 MG, QD
     Route: 042
  48. CEFTRIAXONE [Concomitant]
     Active Substance: CEFTRIAXONE\CEFTRIAXONE SODIUM
     Indication: Product used for unknown indication
     Dosage: 500 MG IVPB 100 ML, Q24H
     Route: 042
  49. OPIUM TINCTURE [Concomitant]
     Active Substance: MORPHINE
     Indication: Product used for unknown indication
     Dosage: 0.6 ML (PT WANTS TO TAKE 2100)
     Route: 048
  50. FENTANYL CITRATE [Concomitant]
     Active Substance: FENTANYL CITRATE
     Indication: Product used for unknown indication
     Dosage: 50 UG (IMPLANTABLE PORT-A-CATH SINGLE LUMEN) (SUBCLAVIAN, RIGHT)
     Route: 042
     Dates: start: 20230212
  51. OMNIPAQUE [Concomitant]
     Active Substance: IOHEXOL
     Indication: Product used for unknown indication
     Dosage: 20 ML ( 300 MG/ML INJECTION 20 ML) (SCHEDULED TIME: 1645)
     Route: 013
  52. MIDAZOLAM [Concomitant]
     Active Substance: MIDAZOLAM
     Indication: Product used for unknown indication
     Dosage: 1 UG (IMPLANTABLE PORT-A-CATH SINGLE LUMEN) (SUBCLAVIAN, RIGHT)
     Route: 042
     Dates: start: 20230212
  53. ESCITALOPRAM OXALATE [Concomitant]
     Active Substance: ESCITALOPRAM OXALATE
     Indication: Product used for unknown indication
     Dosage: UNK
     Route: 065
  54. ACETAMINOPHEN\HYDROCODONE [Concomitant]
     Active Substance: ACETAMINOPHEN\HYDROCODONE
     Indication: Product used for unknown indication
     Dosage: UNK
     Route: 065
  55. METFORMIN [Concomitant]
     Active Substance: METFORMIN HYDROCHLORIDE
     Indication: Product used for unknown indication
     Dosage: UNK
     Route: 065

REACTIONS (31)
  - Platelet count decreased [Recovered/Resolved with Sequelae]
  - Blood bilirubin increased [Unknown]
  - White blood cell count decreased [Recovered/Resolved with Sequelae]
  - Systemic inflammatory response syndrome [Recovered/Resolved with Sequelae]
  - Hyperbilirubinaemia [Recovered/Resolved with Sequelae]
  - Metastases to liver [Recovered/Resolved with Sequelae]
  - Breast cancer metastatic [Recovered/Resolved with Sequelae]
  - Neutropenia [Unknown]
  - Hypovolaemia [Recovered/Resolved with Sequelae]
  - Colitis [Unknown]
  - Colonic abscess [Unknown]
  - Hypokalaemia [Recovered/Resolved with Sequelae]
  - Thrombocytopenia [Unknown]
  - Nausea [Recovered/Resolved with Sequelae]
  - Diarrhoea [Recovered/Resolved with Sequelae]
  - Vomiting [Recovered/Resolved with Sequelae]
  - Tachycardia [Recovered/Resolved with Sequelae]
  - Abdominal pain lower [Unknown]
  - Cardiovascular disorder [Recovered/Resolved with Sequelae]
  - Fatigue [Recovered/Resolved with Sequelae]
  - Cough [Recovered/Resolved with Sequelae]
  - Hyponatraemia [Recovered/Resolved with Sequelae]
  - Liver function test increased [Unknown]
  - Coagulopathy [Unknown]
  - International normalised ratio increased [Unknown]
  - Heart rate increased [Unknown]
  - Gastrooesophageal reflux disease [Unknown]
  - Drug ineffective [Recovered/Resolved with Sequelae]
  - Sinus tachycardia [Unknown]
  - Frequent bowel movements [Unknown]
  - Electrolyte imbalance [Unknown]

NARRATIVE: CASE EVENT DATE: 20221101
